FAERS Safety Report 22629711 (Version 1)
Quarter: 2023Q2

REPORT INFORMATION
  Report Type: Spontaneous
  Country: CA (occurrence: None)
  Receive Date: 20230622
  Receipt Date: 20230622
  Transmission Date: 20230722
  Serious: No
  Sender: FDA-Public Use
  Company Number: CA-ROCHE-3373993

PATIENT
  Age: 46 Year
  Sex: Female

DRUGS (1)
  1. OCREVUS [Suspect]
     Active Substance: OCRELIZUMAB
     Indication: Relapsing-remitting multiple sclerosis
     Route: 042
     Dates: start: 20220516

REACTIONS (1)
  - Oral herpes [Not Recovered/Not Resolved]

NARRATIVE: CASE EVENT DATE: 20230617
